FAERS Safety Report 8227238-X (Version None)
Quarter: 2012Q1

REPORT INFORMATION
  Report Type: 
  Country: None (occurrence: None)
  Receive Date: 20120322
  Receipt Date: 20120315
  Transmission Date: 20120608
  Serious: Yes (Hospitalization)
  Sender: FDA-Public Use
  Company Number: US-US-EMD SERONO, INC.-7017440

PATIENT
  Sex: Female

DRUGS (7)
  1. ATIVAN [Concomitant]
     Indication: ANXIETY
  2. ZOCOR [Concomitant]
     Indication: BLOOD CHOLESTEROL INCREASED
  3. XANAX [Concomitant]
     Indication: ANXIETY
  4. CLARITIN [Concomitant]
     Indication: MULTIPLE ALLERGIES
  5. REBIF [Suspect]
     Indication: MULTIPLE SCLEROSIS
     Route: 058
     Dates: start: 20080305
  6. SYNTHROID [Concomitant]
     Indication: BASEDOW'S DISEASE
  7. PROTONIX [Concomitant]
     Indication: GASTROOESOPHAGEAL REFLUX DISEASE

REACTIONS (3)
  - ANXIETY [None]
  - BURNING SENSATION [None]
  - RHINITIS ALLERGIC [None]
